FAERS Safety Report 4658796-X (Version None)
Quarter: 2005Q2

REPORT INFORMATION
  Report Type: 
  Country: None (occurrence: None)
  Receive Date: 20050509
  Receipt Date: 22050425
  Transmission Date: 20051028
  Serious: Yes (Life-Threatening, Hospitalization)
  Sender: FDA-Public Use
  Company Number: 2005062258

PATIENT
  Age: 65 Year
  Sex: Female

DRUGS (8)
  1. HALCION [Suspect]
     Indication: ILL-DEFINED DISORDER
     Dosage: ORAL
     Route: 048
     Dates: end: 20040101
  2. MILNACIPRAN HYDROCHLORIDE (MILNICIPRAN HYDROCHLORIDE) [Suspect]
     Indication: ILL-DEFINED DISORDER
     Dosage: ORAL; OVER 1 YEAR
     Route: 048
  3. SULPIRIDE (SULPIRIDE) [Suspect]
     Indication: ILL-DEFINED DISORDER
     Dosage: ORAL
     Route: 048
  4. ALL OTHER THERAPEUTIC PRODUCTS (ALL OTHER THERAPEUTIC PRODUCTS) [Suspect]
     Indication: ILL-DEFINED DISORDER
     Dosage: ORAL
     Route: 048
  5. QUAZEPAM [Concomitant]
  6. LEVOMEPROMAZINE (LEVOMEPROMAZINE) [Concomitant]
  7. BRIMAZEPAM (BROMAZEPAM) [Concomitant]
  8. CIMETIDINE [Concomitant]

REACTIONS (1)
  - HEPATITIS FULMINANT [None]
